FAERS Safety Report 9620874 (Version 4)
Quarter: 2013Q4

REPORT INFORMATION
  Report Type: Spontaneous
  Country: FR (occurrence: FR)
  Receive Date: 20131015
  Receipt Date: 20131223
  Transmission Date: 20140711
  Serious: Yes (Other)
  Sender: FDA-Public Use
  Company Number: PHHY2013FR037187

PATIENT
  Age: 71 Year
  Sex: Male

DRUGS (11)
  1. PANTOPRAZOLE SANDOZ [Suspect]
     Indication: DUODENAL ULCER
     Dates: end: 201205
  2. OMEPRAZOLE SANDOZ [Suspect]
     Indication: DUODENAL ULCER
     Dosage: 1 DF, QD
     Dates: start: 201301, end: 20130412
  3. INIPOMP [Suspect]
     Indication: DUODENAL ULCER
  4. ENALAPRIL [Concomitant]
  5. KENZEN [Concomitant]
     Dosage: 4 MG 1 DF, IN EVENING
  6. KENZEN [Concomitant]
     Dosage: 8 MG 1 DF, IN THE MORNING
  7. ESIDREX [Concomitant]
     Dosage: 1 DF,IN MORNING
  8. BETOPTIC [Concomitant]
     Dosage: 1 DRP, Q12H
  9. NAAXIA//SODIUM SPAGLUMATE [Concomitant]
  10. NUTRIVISC [Concomitant]
  11. PARACETAMOL [Concomitant]
     Indication: BACK PAIN
     Dosage: 4 DF PER DAY

REACTIONS (6)
  - Salivary gland pain [Unknown]
  - Drug-induced liver injury [Recovered/Resolved]
  - Hepatomegaly [Unknown]
  - Transaminases increased [Recovered/Resolved]
  - Gamma-glutamyltransferase increased [Recovered/Resolved]
  - Fatigue [Recovering/Resolving]
